FAERS Safety Report 10612041 (Version 1)
Quarter: 2014Q4

REPORT INFORMATION
  Report Type: Report from Study
  Country: NL (occurrence: NL)
  Receive Date: 20141126
  Receipt Date: 20141126
  Transmission Date: 20150529
  Serious: Yes (Death)
  Sender: FDA-Public Use
  Company Number: NL-AMGEN-NLDSL2013094706

PATIENT
  Age: 86 Year
  Sex: Male

DRUGS (1)
  1. ARANESP [Suspect]
     Active Substance: DARBEPOETIN ALFA
     Indication: PRODUCT USED FOR UNKNOWN INDICATION
     Dosage: 20 MG, Q2WK
     Route: 065
     Dates: start: 20130624, end: 20131220

REACTIONS (4)
  - Death [Fatal]
  - Fatigue [Unknown]
  - Oedema peripheral [Unknown]
  - Haematoma [Unknown]

NARRATIVE: CASE EVENT DATE: 20131212
